FAERS Safety Report 12185091 (Version 4)
Quarter: 2016Q2

REPORT INFORMATION
  Report Type: Spontaneous
  Country: AU (occurrence: AU)
  Receive Date: 20160316
  Receipt Date: 20160518
  Transmission Date: 20160815
  Serious: Yes (Other)
  Sender: FDA-Public Use
  Company Number: PHHY2016AU033645

PATIENT
  Sex: Male

DRUGS (2)
  1. CICLOSPORIN [Suspect]
     Active Substance: CYCLOSPORINE
     Indication: APLASTIC ANAEMIA
     Dosage: UNK
     Route: 065
     Dates: start: 20120224
  2. CICLOSPORIN [Suspect]
     Active Substance: CYCLOSPORINE
     Dosage: (SECOND COURSE)
     Route: 065
     Dates: start: 20121031

REACTIONS (5)
  - Renal impairment [Not Recovered/Not Resolved]
  - Platelet count decreased [Unknown]
  - Drug ineffective [Unknown]
  - Product use issue [Unknown]
  - Neutrophil count decreased [Unknown]
